FAERS Safety Report 6470883-2 (Version None)
Quarter: 2009Q4

REPORT INFORMATION
  Report Type: 
  Country: None (occurrence: None)
  Receive Date: 20091203
  Receipt Date: 20080107
  Transmission Date: 20100525
  Serious: Yes (Other)
  Sender: FDA-Public Use
  Company Number: US-ELI_LILLY_AND_COMPANY-US200801001327

PATIENT
  Age: 30 Year
  Sex: Female

DRUGS (4)
  1. BYETTA [Suspect]
     Indication: TYPE 2 DIABETES MELLITUS
     Route: 058
     Dates: start: 20071101
  2. NEXIUM [Concomitant]
     Indication: DYSPEPSIA
     Dosage: UNK, DAILY (1/D)
     Route: 048
  3. VICODIN [Concomitant]
     Indication: MUSCULOSKELETAL PAIN
     Dosage: UNK, AS NEEDED
     Route: 048
  4. ANTI-DIABETICS [Concomitant]
     Indication: TYPE 2 DIABETES MELLITUS
     Dates: end: 20071101

REACTIONS (7)
  - CEREBROVASCULAR ACCIDENT [None]
  - EYE ROLLING [None]
  - HYPOAESTHESIA [None]
  - LIP DISORDER [None]
  - LOSS OF CONSCIOUSNESS [None]
  - MASS [None]
  - MUSCLE TWITCHING [None]
